FAERS Safety Report 18403810 (Version 1)
Quarter: 2020Q4

REPORT INFORMATION
  Report Type: Spontaneous
  Country: GB (occurrence: GB)
  Receive Date: 20201020
  Receipt Date: 20201020
  Transmission Date: 20210114
  Serious: Yes (Hospitalization, Other)
  Sender: FDA-Public Use
  Company Number: GB-SHIRE-GB202033918

PATIENT

DRUGS (3)
  1. ELVANSE [Suspect]
     Active Substance: LISDEXAMFETAMINE DIMESYLATE
     Dosage: 50 MILLIGRAM, UNKNOWN
     Route: 048
     Dates: start: 201901, end: 202006
  2. ELVANSE [Suspect]
     Active Substance: LISDEXAMFETAMINE DIMESYLATE
     Indication: ATTENTION DEFICIT HYPERACTIVITY DISORDER
     Dosage: 30 MILLIGRAM, UNKNOWN
     Route: 048
     Dates: start: 201901, end: 202006
  3. ELVANSE [Suspect]
     Active Substance: LISDEXAMFETAMINE DIMESYLATE
     Dosage: 70 MILLIGRAM, UNKNOWN
     Route: 048
     Dates: start: 201901, end: 202006

REACTIONS (6)
  - Bacterial infection [Recovered/Resolved with Sequelae]
  - Drug ineffective [Unknown]
  - Psychotic disorder [Recovered/Resolved with Sequelae]
  - Hallucination, auditory [Unknown]
  - Delirium [Recovered/Resolved with Sequelae]
  - Paranoia [Unknown]

NARRATIVE: CASE EVENT DATE: 201906
